FAERS Safety Report 23371876 (Version 2)
Quarter: 2024Q1

REPORT INFORMATION
  Report Type: Spontaneous
  Country: US (occurrence: US)
  Receive Date: 20240105
  Receipt Date: 20240219
  Transmission Date: 20240410
  Serious: Yes (Other)
  Sender: FDA-Public Use
  Company Number: US-MYLANLABS-2023M1138513

PATIENT
  Sex: Female
  Weight: 89.81 kg

DRUGS (1)
  1. XULANE [Suspect]
     Active Substance: ETHINYL ESTRADIOL\NORELGESTROMIN
     Indication: Contraception
     Dosage: UNK,  ONCE EVERY 3 WEEK
     Route: 062
     Dates: start: 2016, end: 201710

REACTIONS (17)
  - Abortion spontaneous [Unknown]
  - Myopia [Not Recovered/Not Resolved]
  - Peripheral swelling [Unknown]
  - Hypoaesthesia [Unknown]
  - Blood pressure abnormal [Unknown]
  - Peripheral swelling [Unknown]
  - Morning sickness [Unknown]
  - Headache [Unknown]
  - Vomiting [Unknown]
  - Nausea [Unknown]
  - Dizziness [Unknown]
  - Amenorrhoea [Unknown]
  - Haemorrhage [Unknown]
  - Fatigue [Unknown]
  - Vaginal discharge [Unknown]
  - Fluid retention [Unknown]
  - Product adhesion issue [Unknown]
